FAERS Safety Report 13644731 (Version 1)
Quarter: 2017Q2

REPORT INFORMATION
  Report Type: Spontaneous
  Country: US (occurrence: US)
  Receive Date: 20170612
  Receipt Date: 20170612
  Transmission Date: 20170830
  Serious: Yes (Other)
  Sender: FDA-Public Use
  Company Number: US-ROCHE-1510348

PATIENT
  Sex: Male

DRUGS (7)
  1. ZYRTEC [Concomitant]
     Active Substance: CETIRIZINE HYDROCHLORIDE
     Route: 065
  2. PROCHLORPERAZINE SUPPOSITORIES [Concomitant]
     Route: 065
  3. PROAIR HFA [Concomitant]
     Active Substance: ALBUTEROL SULFATE
     Route: 065
  4. B-COMPLEX VITAMINS [Concomitant]
  5. XELODA [Suspect]
     Active Substance: CAPECITABINE
     Route: 048
     Dates: end: 20141222
  6. LORAZEPAM. [Concomitant]
     Active Substance: LORAZEPAM
     Dosage: 2 MG/ML
     Route: 065
  7. XELODA [Suspect]
     Active Substance: CAPECITABINE
     Indication: COLON CANCER
     Dosage: FOR 14 DAYS
     Route: 048
     Dates: start: 20140701

REACTIONS (4)
  - Rectal haemorrhage [Recovered/Resolved]
  - Blood pressure increased [Unknown]
  - Thrombosis [Recovered/Resolved]
  - Internal haemorrhage [Recovered/Resolved]
